FAERS Safety Report 22845648 (Version 2)
Quarter: 2023Q4

REPORT INFORMATION
  Report Type: Report from Study
  Country: US (occurrence: US)
  Receive Date: 20230821
  Receipt Date: 20231023
  Transmission Date: 20240110
  Serious: Yes (Hospitalization)
  Sender: FDA-Public Use
  Company Number: US-ABBVIE-4763471

PATIENT
  Sex: Male

DRUGS (2)
  1. SKYRIZI [Suspect]
     Active Substance: RISANKIZUMAB-RZAA
     Indication: Psoriatic arthropathy
     Dosage: FORM STRENGTH: 150 MG AT WEEK 0
     Route: 058
     Dates: start: 20230410, end: 20230410
  2. SKYRIZI [Suspect]
     Active Substance: RISANKIZUMAB-RZAA
     Dosage: FORM STRENGTH: 150 MG AT WEEK 4 END DATE :2023
     Route: 058

REACTIONS (17)
  - Renal failure [Unknown]
  - Sneezing [Unknown]
  - Chills [Unknown]
  - Oropharyngeal pain [Unknown]
  - Hypotension [Unknown]
  - Arthralgia [Unknown]
  - Dizziness [Unknown]
  - Headache [Recovered/Resolved]
  - Rhinorrhoea [Unknown]
  - Cough [Unknown]
  - Myalgia [Unknown]
  - Dehydration [Unknown]
  - Pain [Unknown]
  - Chromaturia [Unknown]
  - Weight decreased [Unknown]
  - Grip strength decreased [Unknown]
  - Eye movement disorder [Unknown]

NARRATIVE: CASE EVENT DATE: 20230101
